FAERS Safety Report 8383322 (Version 2)
Quarter: 2015Q1

REPORT INFORMATION
  Report Type: Report from Study
  Country: US (occurrence: US)
  Receive Date: 20120130
  Receipt Date: 20150211
  Transmission Date: 20150721
  Serious: Yes (Death)
  Sender: FDA-Public Use
  Company Number: US-ROCHE-1033694

PATIENT
  Age: 44 Year
  Sex: Male

DRUGS (13)
  1. OXYCODONE [Concomitant]
     Active Substance: OXYCODONE
     Route: 065
  2. ZINC OXIDE. [Concomitant]
     Active Substance: ZINC OXIDE
     Route: 065
  3. TORISEL [Concomitant]
     Active Substance: TEMSIROLIMUS
     Route: 042
  4. BENADRYL [Concomitant]
     Active Substance: DIPHENHYDRAMINE HYDROCHLORIDE
     Route: 042
  5. PROCHLORPERAZINE. [Concomitant]
     Active Substance: PROCHLORPERAZINE
     Route: 065
  6. AVASTIN [Suspect]
     Active Substance: BEVACIZUMAB
     Indication: RENAL CANCER
     Route: 042
  7. OXYCODONE [Concomitant]
     Active Substance: OXYCODONE
     Route: 065
  8. MEGESTROL [Concomitant]
     Active Substance: MEGESTROL
     Route: 065
  9. LOVENOX [Concomitant]
     Active Substance: ENOXAPARIN SODIUM
     Route: 065
  10. BISACODYL. [Concomitant]
     Active Substance: BISACODYL
     Route: 065
  11. DOCUSATE [Concomitant]
     Active Substance: DOCUSATE
     Route: 065
  12. FERROUS SULFATE [Concomitant]
     Active Substance: FERROUS SULFATE\FERROUS SULFATE, DRIED
     Route: 065
  13. COUMADINE [Concomitant]
     Active Substance: WARFARIN SODIUM
     Route: 065

REACTIONS (8)
  - Fatigue [Unknown]
  - Venous thrombosis limb [Unknown]
  - Pain [Unknown]
  - Death [Fatal]
  - Hypotension [Unknown]
  - Dizziness [Unknown]
  - Pulmonary embolism [Unknown]
  - Disease progression [Unknown]

NARRATIVE: CASE EVENT DATE: 20081112
